FAERS Safety Report 19506979 (Version 3)
Quarter: 2021Q3

REPORT INFORMATION
  Report Type: Report from Study
  Country: US (occurrence: US)
  Receive Date: 20210708
  Receipt Date: 20210812
  Transmission Date: 20211014
  Serious: Yes (Hospitalization, Other)
  Sender: FDA-Public Use
  Company Number: US-JNJFOC-20210635617

PATIENT
  Age: 69 Year
  Sex: Female
  Weight: 81.8 kg

DRUGS (6)
  1. SELEXIPAG [Suspect]
     Active Substance: SELEXIPAG
     Route: 048
  2. SELEXIPAG [Suspect]
     Active Substance: SELEXIPAG
     Indication: PULMONARY ARTERIAL HYPERTENSION
     Route: 048
  3. OPSUMIT [Concomitant]
     Active Substance: MACITENTAN
  4. AMLODIPINE [Concomitant]
     Active Substance: AMLODIPINE BESYLATE
  5. ADEMPAS [Concomitant]
     Active Substance: RIOCIGUAT
  6. SELEXIPAG [Suspect]
     Active Substance: SELEXIPAG
     Dosage: 800 UG AM, 1000 UG PM
     Route: 048

REACTIONS (3)
  - Urinary retention [Unknown]
  - Renal disorder [Unknown]
  - Renal injury [Unknown]

NARRATIVE: CASE EVENT DATE: 20210614
